FAERS Safety Report 18087357 (Version 2)
Quarter: 2020Q3

REPORT INFORMATION
  Report Type: Spontaneous
  Country: IT (occurrence: IT)
  Receive Date: 20200729
  Receipt Date: 20200928
  Transmission Date: 20201103
  Serious: Yes (Disabling, Other)
  Sender: FDA-Public Use
  Company Number: IT-009507513-2007ITA010691

PATIENT
  Age: 22 Year
  Sex: Male
  Weight: 75 kg

DRUGS (6)
  1. PROPECIA [Suspect]
     Active Substance: FINASTERIDE
     Indication: ANDROGENETIC ALOPECIA
     Dosage: 1 MG / DAY
     Route: 048
     Dates: start: 200704, end: 200905
  2. PROPECIA [Suspect]
     Active Substance: FINASTERIDE
     Dosage: 1 MG / DAY
     Route: 048
     Dates: start: 201006, end: 201009
  3. PROPECIA [Suspect]
     Active Substance: FINASTERIDE
     Dosage: 1 MG / DAY
     Route: 048
     Dates: start: 201212, end: 201501
  4. PROPECIA [Suspect]
     Active Substance: FINASTERIDE
     Dosage: 1 MG / DAY
     Route: 048
     Dates: start: 201107, end: 201112
  5. PROPECIA [Suspect]
     Active Substance: FINASTERIDE
     Dosage: 1 MG / DAY
     Route: 048
     Dates: start: 201203, end: 201207
  6. PROPECIA [Suspect]
     Active Substance: FINASTERIDE
     Dosage: 1 MG / DAY
     Route: 048
     Dates: start: 201012, end: 201103

REACTIONS (9)
  - Weight decreased [Unknown]
  - Malabsorption [Unknown]
  - Aspartate aminotransferase increased [Unknown]
  - Neck pain [Unknown]
  - Musculoskeletal pain [Unknown]
  - Blood bilirubin increased [Unknown]
  - Post 5-alpha-reductase inhibitor syndrome [Unknown]
  - Alanine aminotransferase increased [Unknown]
  - Intervertebral disc protrusion [Unknown]

NARRATIVE: CASE EVENT DATE: 2007
